FAERS Safety Report 10060951 (Version 1)
Quarter: 2014Q2

REPORT INFORMATION
  Report Type: Report from Study
  Country: MX (occurrence: MX)
  Receive Date: 20140404
  Receipt Date: 20140404
  Transmission Date: 20141212
  Serious: Yes (Other)
  Sender: FDA-Public Use
  Company Number: PHHY2014MX041281

PATIENT
  Age: 83 Year
  Sex: Female

DRUGS (3)
  1. TRILEPTAL [Suspect]
     Dosage: 0.5 DF IN THE MORNING, AND 0.5 DF IN THE EVENINGS
     Route: 048
     Dates: start: 201401
  2. CLONAZEPAM [Concomitant]
     Dosage: ONE (UNK) DAILY
     Dates: start: 201403
  3. CONCOR [Concomitant]
     Indication: BLOOD PRESSURE ABNORMAL
     Dosage: ONE (UNK) DAILY
     Dates: start: 2010

REACTIONS (1)
  - Vascular compression [Not Recovered/Not Resolved]
